FAERS Safety Report 21120713 (Version 1)
Quarter: 2022Q3

REPORT INFORMATION
  Report Type: Spontaneous
  Country: KP (occurrence: KP)
  Receive Date: 20220722
  Receipt Date: 20220722
  Transmission Date: 20221027
  Serious: Yes (Other)
  Sender: FDA-Public Use
  Company Number: KP-UNIQUE PHARMACEUTICAL LABORATORIES, A DIV. OF JBCPL-2022UNI000037

PATIENT
  Age: 59 Year
  Sex: Female

DRUGS (5)
  1. LITHIUM CARBONATE [Suspect]
     Active Substance: LITHIUM CARBONATE
     Indication: Bipolar disorder
     Dosage: 1200 MILLIGRAM, QD
     Route: 065
  2. LORAZEPAM [Concomitant]
     Active Substance: LORAZEPAM
     Indication: Bipolar disorder
     Dosage: 0.5 MILLIGRAM, QD
  3. HALOPERIDOL [Concomitant]
     Active Substance: HALOPERIDOL
     Indication: Bipolar disorder
     Dosage: 5 MILLIGRAM, QD
     Route: 065
  4. TRAZODONE [Concomitant]
     Active Substance: TRAZODONE HYDROCHLORIDE
     Indication: Bipolar disorder
     Dosage: 25 MILLIGRAM, QD
     Route: 065
  5. ZOTEPINE [Concomitant]
     Active Substance: ZOTEPINE
     Indication: Bipolar disorder
     Dosage: 50 MILLIGRAM, QD
     Route: 065

REACTIONS (3)
  - Cytotoxic lesions of corpus callosum [Recovered/Resolved]
  - Neurotoxicity [Recovered/Resolved]
  - Neuroleptic malignant syndrome [Recovered/Resolved]
